FAERS Safety Report 17508843 (Version 1)
Quarter: 2020Q1

REPORT INFORMATION
  Report Type: Spontaneous
  Country: DE (occurrence: DE)
  Receive Date: 20200306
  Receipt Date: 20200306
  Transmission Date: 20200409
  Serious: Yes (Hospitalization, Disabling, Other)
  Sender: FDA-Public Use
  Company Number: DE-PFIZER INC-2020095226

PATIENT

DRUGS (1)
  1. CYTOTEC [Suspect]
     Active Substance: MISOPROSTOL
     Dosage: UNK
     Route: 064
     Dates: start: 20160915

REACTIONS (8)
  - Nervous system disorder [Recovered/Resolved with Sequelae]
  - Foetal exposure during delivery [Unknown]
  - Neonatal hypoxia [Recovered/Resolved with Sequelae]
  - Neonatal disorder [Recovered/Resolved with Sequelae]
  - Speech disorder [Recovered/Resolved with Sequelae]
  - Circulatory failure neonatal [Recovered/Resolved with Sequelae]
  - Neonatal seizure [Recovered/Resolved with Sequelae]
  - Cerebral palsy [Recovered/Resolved with Sequelae]

NARRATIVE: CASE EVENT DATE: 20160915
